FAERS Safety Report 23393841 (Version 2)
Quarter: 2024Q1

REPORT INFORMATION
  Report Type: Spontaneous
  Country: IT (occurrence: IT)
  Receive Date: 20240111
  Receipt Date: 20240125
  Transmission Date: 20240409
  Serious: Yes (Other)
  Sender: FDA-Public Use
  Company Number: None

PATIENT
  Age: 35 Year
  Sex: Female
  Weight: 61 kg

DRUGS (2)
  1. MEDROL [Interacting]
     Active Substance: METHYLPREDNISOLONE
     Dosage: 4 MG
     Dates: start: 20161213
  2. TACROLIMUS [Interacting]
     Active Substance: TACROLIMUS
     Indication: Kidney transplant rejection
     Dosage: 7 MG

REACTIONS (2)
  - Renal failure [Recovered/Resolved with Sequelae]
  - Labelled drug-drug interaction medication error [Unknown]

NARRATIVE: CASE EVENT DATE: 20220204
